FAERS Safety Report 5453226-2 (Version None)
Quarter: 2007Q3

REPORT INFORMATION
  Report Type: 
  Country: None (occurrence: None)
  Receive Date: 20070813
  Receipt Date: 20070508
  Transmission Date: 20080115
  Serious: No
  Sender: FDA-Public Use
  Company Number: 20073682

PATIENT
  Age: 53 Year
  Sex: Female

DRUGS (11)
  1. LIORESAL [Suspect]
     Indication: MUSCLE SPASTICITY
     Dosage: 719 MCG, DAILY, INTRATHECAL
     Route: 037
  2. OXYCODONE HCL [Concomitant]
  3. SKELAXIN [Concomitant]
  4. EFFEXOR [Concomitant]
  5. LYRICA [Concomitant]
  6. PROTONIX [Concomitant]
  7. METHADONE HCL [Concomitant]
  8. HYDRODIURIL [Concomitant]
  9. TRICOR [Concomitant]
  10. KLONOPIN [Concomitant]
  11. COREG [Concomitant]

REACTIONS (5)
  - ACCIDENT [None]
  - DRUG INEFFECTIVE [None]
  - HYPERTONIA [None]
  - INJURY [None]
  - PAIN [None]
